FAERS Safety Report 4664233-1 (Version None)
Quarter: 2005Q2

REPORT INFORMATION
  Report Type: 
  Country: None (occurrence: None)
  Receive Date: 20050516
  Receipt Date: 20050516
  Transmission Date: 20051028
  Serious: Yes (Death)
  Sender: FDA-Public Use
  Company Number: None

PATIENT
  Age: 64 Year
  Sex: Male
  Weight: 108.8633 kg

DRUGS (7)
  1. PLAVIX [Suspect]
     Indication: THROMBOSIS PROPHYLAXIS
     Dosage: 75MG    DAILY    ORAL
     Route: 048
     Dates: start: 20041012, end: 20050228
  2. K-DUR 10 [Concomitant]
  3. LOZOL [Concomitant]
  4. BENICAR [Concomitant]
  5. TOPROL-XL [Concomitant]
  6. PLAVIX [Concomitant]
  7. HYDRALAZINE HCL [Concomitant]

REACTIONS (1)
  - THROMBOSIS IN DEVICE [None]
